FAERS Safety Report 8766905 (Version 1)
Quarter: 2012Q4

REPORT INFORMATION
  Report Type: 
  Country: US (occurrence: US)
  Receive Date: 20120904
  Receipt Date: 20120904
  Transmission Date: 20130627
  Serious: Yes (Other)
  Sender: FDA-Public Use
  Company Number: US-JNJFOC-20120814740

PATIENT
  Sex: Female

DRUGS (1)
  1. NICOTINE BITARTRATE ANHYDROUS [Suspect]
     Indication: SMOKING CESSATION THERAPY
     Route: 002

REACTIONS (7)
  - Nicotine dependence [Unknown]
  - Intentional drug misuse [Unknown]
  - Tooth injury [Unknown]
  - Weight decreased [Unknown]
  - Tooth erosion [Unknown]
  - Adverse event [Unknown]
  - Drug administration error [Unknown]
